FAERS Safety Report 18797203 (Version 2)
Quarter: 2023Q1

REPORT INFORMATION
  Report Type: Spontaneous
  Country: US (occurrence: US)
  Receive Date: 20210128
  Receipt Date: 20230131
  Transmission Date: 20230417
  Serious: No
  Sender: FDA-Public Use
  Company Number: US-CIPLA LTD.-2020US07592

PATIENT
  Sex: Male

DRUGS (1)
  1. ALBUTEROL [Suspect]
     Active Substance: ALBUTEROL
     Indication: Product used for unknown indication
     Dosage: UNK
     Route: 065
     Dates: start: 202010

REACTIONS (6)
  - Drug delivery system issue [Unknown]
  - Drug ineffective [Unknown]
  - Device defective [Unknown]
  - Device maintenance issue [Unknown]
  - Product cleaning inadequate [Unknown]
  - Device occlusion [Unknown]

NARRATIVE: CASE EVENT DATE: 20201001
